FAERS Safety Report 8346982-7 (Version None)
Quarter: 2012Q2

REPORT INFORMATION
  Report Type: 
  Country: None (occurrence: None)
  Receive Date: 20120507
  Receipt Date: 20120507
  Transmission Date: 20120825
  Serious: Yes (Hospitalization)
  Sender: FDA-Public Use
  Company Number: None

PATIENT
  Sex: Male
  Weight: 98.6 kg

DRUGS (6)
  1. CYTARABINE [Suspect]
     Dosage: 1360 MG
  2. METHOTREXATE [Suspect]
     Dosage: 60 MG
  3. VINCRISTINE SULFATE [Suspect]
     Dosage: 4 MG
  4. CYCLOPHOSPHAMIDE [Suspect]
     Dosage: 2300 MG
  5. MERCAPTOPURINE [Suspect]
     Dosage: 2000 MG
  6. PEG-L-ASPARAGINASE (K-H) [Suspect]
     Dosage: 5700 UNT

REACTIONS (5)
  - BLOOD CHOLESTEROL INCREASED [None]
  - THROMBOPHLEBITIS [None]
  - NAUSEA [None]
  - BLOOD TRIGLYCERIDES INCREASED [None]
  - FAILURE TO THRIVE [None]
